FAERS Safety Report 4659286-0 (Version None)
Quarter: 2005Q2

REPORT INFORMATION
  Report Type: 
  Country: None (occurrence: None)
  Receive Date: 20050511
  Receipt Date: 20050502
  Transmission Date: 20051028
  Serious: Yes (Other)
  Sender: FDA-Public Use
  Company Number: CA-AMGEN-US131101

PATIENT
  Sex: Male

DRUGS (2)
  1. ARANESP [Suspect]
     Indication: RENAL FAILURE CHRONIC
     Dates: end: 20050404
  2. EPREX [Suspect]
     Indication: RENAL FAILURE CHRONIC

REACTIONS (1)
  - BONE MARROW DEPRESSION [None]
